FAERS Safety Report 5073330-0 (Version None)
Quarter: 2006Q3

REPORT INFORMATION
  Report Type: 
  Country: None (occurrence: None)
  Receive Date: 20060802
  Receipt Date: 20060720
  Transmission Date: 20061208
  Serious: Yes (Disabling, Other)
  Sender: FDA-Public Use
  Company Number: 2006090385

PATIENT
  Sex: Male
  Weight: 136.0791 kg

DRUGS (3)
  1. NEURONTIN [Suspect]
     Indication: NEURALGIA
  2. LYRICA [Suspect]
     Indication: NEURALGIA
     Dates: start: 20050101
  3. ANALGESICS (ANALGESICS) [Concomitant]

REACTIONS (7)
  - DRUG INEFFECTIVE [None]
  - DYSGRAPHIA [None]
  - HYPOTONIA [None]
  - MEMORY IMPAIRMENT [None]
  - MOBILITY DECREASED [None]
  - NASOPHARYNGITIS [None]
  - WEIGHT DECREASED [None]
